FAERS Safety Report 12311312 (Version 1)
Quarter: 2016Q2

REPORT INFORMATION
  Report Type: Report from Study
  Country: DE (occurrence: DE)
  Receive Date: 20160427
  Receipt Date: 20160427
  Transmission Date: 20160815
  Serious: Yes (Hospitalization)
  Sender: FDA-Public Use
  Company Number: DE-CELGENEUS-DEU-2016044160

PATIENT
  Age: 79 Year
  Sex: Male

DRUGS (1)
  1. REVLIMID [Suspect]
     Active Substance: LENALIDOMIDE
     Indication: PLASMA CELL MYELOMA
     Dosage: 25 MILLIGRAM
     Route: 048
     Dates: start: 20130712, end: 20150910

REACTIONS (6)
  - Prostatic obstruction [Recovered/Resolved]
  - Prostate cancer [Recovered/Resolved]
  - Urosepsis [Recovered/Resolved]
  - Prostatectomy [Recovered/Resolved]
  - General physical health deterioration [Recovered/Resolved]
  - Hyperplasia [Recovered/Resolved]

NARRATIVE: CASE EVENT DATE: 20150630
